FAERS Safety Report 17005495 (Version 2)
Quarter: 2019Q4

REPORT INFORMATION
  Report Type: Report from Study
  Country: US (occurrence: US)
  Receive Date: 20191107
  Receipt Date: 20191220
  Transmission Date: 20200122
  Serious: Yes (Hospitalization, Other)
  Sender: FDA-Public Use
  Company Number: US-BAYER-2019-120770

PATIENT
  Age: 61 Year
  Sex: Female

DRUGS (2)
  1. VITRAKVI [Suspect]
     Active Substance: LAROTRECTINIB
     Indication: OESOPHAGEAL CARCINOMA
     Dosage: 200 MG, QD
     Route: 048
     Dates: start: 20190808
  2. VITRAKVI [Suspect]
     Active Substance: LAROTRECTINIB
     Indication: OESOPHAGEAL CARCINOMA
     Dosage: 100 MG, BID
     Route: 048
     Dates: start: 20190614, end: 20190806

REACTIONS (8)
  - Diarrhoea [Not Recovered/Not Resolved]
  - Bone neoplasm [Not Recovered/Not Resolved]
  - Pharyngeal operation [None]
  - Weight increased [Not Recovered/Not Resolved]
  - Throat irritation [Not Recovered/Not Resolved]
  - Feeling abnormal [Not Recovered/Not Resolved]
  - Product dose omission [None]
  - Atrial fibrillation [None]

NARRATIVE: CASE EVENT DATE: 20190807
